FAERS Safety Report 21224396 (Version 2)
Quarter: 2022Q4

REPORT INFORMATION
  Report Type: Spontaneous
  Country: US (occurrence: US)
  Receive Date: 20220817
  Receipt Date: 20221212
  Transmission Date: 20230113
  Serious: Yes (Hospitalization, Other)
  Sender: FDA-Public Use
  Company Number: US-CELGENE-USA-20220103483

PATIENT
  Age: 79 Year
  Sex: Male
  Weight: 93 kg

DRUGS (19)
  1. REVLIMID [Suspect]
     Active Substance: LENALIDOMIDE
     Indication: Plasma cell myeloma
     Dosage: 5 MILLIGRAM, 21IN 28 DAYS
     Route: 048
     Dates: start: 202111
  2. REVLIMID [Suspect]
     Active Substance: LENALIDOMIDE
     Dosage: FREQUENCY EVERY OTHER DAY
     Route: 048
     Dates: start: 20211115, end: 20220802
  3. REVLIMID [Suspect]
     Active Substance: LENALIDOMIDE
     Dosage: USE AS DIRECTED?START DATE 07-JAN-2022
     Route: 048
  4. REVLIMID [Suspect]
     Active Substance: LENALIDOMIDE
     Dosage: EVERY OTHER DAY?START DATE 08-JAN-2022
     Route: 048
  5. CLOPIDOGREL BISULFATE [Concomitant]
     Active Substance: CLOPIDOGREL BISULFATE
     Dosage: DAILY
     Route: 048
     Dates: start: 20210211
  6. ALLOPURINOL [Concomitant]
     Active Substance: ALLOPURINOL
     Dosage: DAILY
     Route: 048
     Dates: start: 20210211
  7. ASPIRIN [Concomitant]
     Active Substance: ASPIRIN
     Dosage: DAILY
     Route: 048
     Dates: start: 20210211
  8. SUCRALFATE [Concomitant]
     Active Substance: SUCRALFATE
     Route: 048
     Dates: start: 20210211
  9. ENTRESTO [Concomitant]
     Active Substance: SACUBITRIL\VALSARTAN
     Dosage: DOSE: 24-26MG
     Route: 048
     Dates: start: 20210211
  10. FERROUS SULFATE [Concomitant]
     Active Substance: FERROUS SULFATE
     Dosage: 325 (65 FE), 3 IN 1 DAY
     Route: 048
     Dates: start: 20210211
  11. GABAPENTIN [Concomitant]
     Active Substance: GABAPENTIN
     Dosage: 300MG AS NEEDED
     Route: 048
     Dates: start: 20210211
  12. GLIPIZIDE [Concomitant]
     Active Substance: GLIPIZIDE
     Dosage: DAILY
     Route: 048
     Dates: start: 20210211
  13. METFORMIN HYDROCHLORIDE [Concomitant]
     Active Substance: METFORMIN HYDROCHLORIDE
     Route: 048
     Dates: start: 20210211
  14. PANTOPRAZOLE SODIUM [Concomitant]
     Active Substance: PANTOPRAZOLE SODIUM
     Dosage: DAILY
     Route: 048
     Dates: start: 20210211
  15. PRAVASTATIN SODIUM [Concomitant]
     Dosage: DAILY
     Route: 048
     Dates: start: 20210211
  16. TAMSULOSIN HYDROCHLORIDE [Concomitant]
     Active Substance: TAMSULOSIN HYDROCHLORIDE
     Dosage: DAILY
     Route: 048
     Dates: start: 20210211
  17. ZOLPIDEM TARTRATE [Concomitant]
     Active Substance: ZOLPIDEM TARTRATE
     Dosage: 5MG AS NEEDED
     Route: 048
     Dates: start: 20210211
  18. RETACRIT [Concomitant]
     Active Substance: EPOETIN ALFA-EPBX
     Indication: Product used for unknown indication
     Route: 058
     Dates: start: 20220603
  19. Daratumumab faspro [Concomitant]
     Indication: Plasma cell myeloma
     Route: 058
     Dates: start: 20220620

REACTIONS (2)
  - Dyspnoea [Recovering/Resolving]
  - Acute myocardial infarction [Recovered/Resolved]

NARRATIVE: CASE EVENT DATE: 20211208
